FAERS Safety Report 23909787 (Version 1)
Quarter: 2024Q2

REPORT INFORMATION
  Report Type: Report from Study
  Country: AE (occurrence: AE)
  Receive Date: 20240528
  Receipt Date: 20240528
  Transmission Date: 20240715
  Serious: Yes (Hospitalization, Other)
  Sender: FDA-Public Use
  Company Number: AE-BRISTOL-MYERS SQUIBB COMPANY-2023-174495

PATIENT
  Age: 58 Year
  Sex: Male
  Weight: 76 kg

DRUGS (8)
  1. OPDIVO [Suspect]
     Active Substance: NIVOLUMAB
     Indication: Clear cell renal cell carcinoma
     Dosage: 2 VIALS EVERY 2 WEEKS
     Route: 042
     Dates: start: 20230925
  2. OPDIVO [Suspect]
     Active Substance: NIVOLUMAB
     Route: 042
  3. OPDIVO [Suspect]
     Active Substance: NIVOLUMAB
     Route: 042
     Dates: start: 20231106
  4. OPDIVO [Suspect]
     Active Substance: NIVOLUMAB
     Route: 042
     Dates: end: 20231106
  5. YERVOY [Suspect]
     Active Substance: IPILIMUMAB
     Indication: Clear cell renal cell carcinoma
     Dosage: 1 VIALS EVERY 2 WEEKS
     Route: 042
     Dates: start: 20230925
  6. YERVOY [Suspect]
     Active Substance: IPILIMUMAB
     Dosage: 1 VIALS EVERY 2 WEEKS
     Route: 042
  7. YERVOY [Suspect]
     Active Substance: IPILIMUMAB
     Dosage: 1 VIALS EVERY 2 WEEKS
     Route: 042
     Dates: start: 20231106
  8. YERVOY [Suspect]
     Active Substance: IPILIMUMAB
     Dosage: 1 VIALS EVERY 2 WEEKS
     Route: 042
     Dates: end: 20231106

REACTIONS (2)
  - Off label use [Unknown]
  - Colitis ulcerative [Recovered/Resolved with Sequelae]

NARRATIVE: CASE EVENT DATE: 20231111
